FAERS Safety Report 16146964 (Version 2)
Quarter: 2019Q2

REPORT INFORMATION
  Report Type: Spontaneous
  Country: JP (occurrence: JP)
  Receive Date: 20190402
  Receipt Date: 20190429
  Transmission Date: 20190711
  Serious: Yes (Hospitalization, Other)
  Sender: FDA-Public Use
  Company Number: JP-ASTELLAS-2019JP005450

PATIENT
  Age: 32 Year
  Sex: Female

DRUGS (2)
  1. CERTICAN [Suspect]
     Active Substance: EVEROLIMUS
     Indication: PRODUCT USED FOR UNKNOWN INDICATION
     Dosage: 1 MG/DAY, UNKNOWN FREQ.
     Route: 048
     Dates: start: 201802
  2. PROGRAF [Suspect]
     Active Substance: TACROLIMUS\TACROLIMUS ANHYDROUS
     Indication: PROPHYLAXIS AGAINST TRANSPLANT REJECTION
     Dosage: 1 MG/DAY, UNKNOWN FREQ.
     Route: 048
     Dates: start: 201802

REACTIONS (1)
  - Post procedural bile leak [Recovered/Resolved]

NARRATIVE: CASE EVENT DATE: 20180306
